FAERS Safety Report 7773842-2 (Version None)
Quarter: 2011Q3

REPORT INFORMATION
  Report Type: 
  Country: None (occurrence: None)
  Receive Date: 20110923
  Receipt Date: 20110913
  Transmission Date: 20111222
  Serious: Yes (Other)
  Sender: FDA-Public Use
  Company Number: ZA-JNJFOC-20110906424

PATIENT
  Age: 54 Year
  Sex: Male

DRUGS (2)
  1. ZOLPIDEM [Concomitant]
     Indication: SLEEP DISORDER
     Route: 065
  2. RISPERDAL [Suspect]
     Indication: DEPRESSION
     Dosage: 0.5MG AT NIGHT AND SOMETIMES TAKES HALF OF 0.5MG AT NIGHT
     Route: 065

REACTIONS (6)
  - ORTHOSTATIC HYPOTENSION [None]
  - GASTRIC ULCER [None]
  - HYPOTHYROIDISM [None]
  - VERTIGO [None]
  - PALPITATIONS [None]
  - ANXIETY [None]
